FAERS Safety Report 9556220 (Version 1)
Quarter: 2013Q3

REPORT INFORMATION
  Report Type: Spontaneous
  Country: GB (occurrence: GB)
  Receive Date: 20130926
  Receipt Date: 20130926
  Transmission Date: 20140515
  Serious: Yes (Life-Threatening, Hospitalization)
  Sender: FDA-Public Use
  Company Number: GB-JNJFOC-20130914413

PATIENT
  Age: 84 Year
  Sex: Female

DRUGS (6)
  1. XARELTO [Suspect]
     Indication: ANTICOAGULANT THERAPY
     Route: 048
     Dates: start: 20130613, end: 20130909
  2. SIMVASTATIN [Concomitant]
     Route: 065
  3. LANSOPRAZOLE [Concomitant]
     Route: 065
  4. DIGOXINE [Concomitant]
     Dosage: 125 MCG/24HR
     Route: 065
  5. AMLODIPINE [Concomitant]
     Route: 065
  6. CITALOPRAM [Concomitant]
     Route: 065

REACTIONS (4)
  - Microcytic anaemia [Not Recovered/Not Resolved]
  - Upper gastrointestinal haemorrhage [Not Recovered/Not Resolved]
  - Dyspnoea exertional [Unknown]
  - Lethargy [Unknown]
